FAERS Safety Report 5440563-0 (Version None)
Quarter: 2007Q3

REPORT INFORMATION
  Report Type: 
  Country: None (occurrence: None)
  Receive Date: 20070731
  Receipt Date: 20070610
  Transmission Date: 20080115
  Serious: No
  Sender: FDA-Public Use
  Company Number: US200706002170

PATIENT
  Age: 62 Year
  Sex: Female
  Weight: 82.1 kg

DRUGS (3)
  1. BYETTA [Suspect]
     Indication: TYPE 2 DIABETES MELLITUS
     Dosage: 5 UG, 2/D, SUBCUTANEOUS
     Route: 058
     Dates: start: 20070428
  2. ACTOS (PIOGLITAZONE UNKNOWN FORMULATION) [Concomitant]
  3. METFORMIN HCL [Concomitant]

REACTIONS (9)
  - BLOOD GLUCOSE INCREASED [None]
  - CHILLS [None]
  - COUGH [None]
  - DECREASED APPETITE [None]
  - NASOPHARYNGITIS [None]
  - NAUSEA [None]
  - PYREXIA [None]
  - VOMITING [None]
  - WEIGHT DECREASED [None]
